FAERS Safety Report 9287040 (Version 2)
Quarter: 2013Q3

REPORT INFORMATION
  Report Type: Report from Study
  Country: US (occurrence: US)
  Receive Date: 20130513
  Receipt Date: 20130909
  Transmission Date: 20140515
  Serious: Yes (Other)
  Sender: FDA-Public Use
  Company Number: US-ELI_LILLY_AND_COMPANY-US201211006869

PATIENT
  Age: 87 Year
  Sex: Female

DRUGS (2)
  1. TERIPARATIDE [Suspect]
     Indication: OSTEOPOROSIS
     Dosage: 20 UG, QD
     Dates: start: 20121116
  2. TERIPARATIDE [Suspect]
     Dosage: UNK, QD
     Dates: start: 20121117

REACTIONS (16)
  - Hip fracture [Unknown]
  - Fall [Unknown]
  - Musculoskeletal stiffness [Unknown]
  - Musculoskeletal discomfort [Unknown]
  - Facial pain [Not Recovered/Not Resolved]
  - Skin disorder [Unknown]
  - Anxiety [Unknown]
  - Fall [Unknown]
  - Headache [Recovered/Resolved]
  - Neck pain [Unknown]
  - Rash [Unknown]
  - Rash [Recovered/Resolved]
  - Rash [Recovering/Resolving]
  - Arthralgia [Unknown]
  - Nausea [Recovered/Resolved]
  - Muscle spasms [Unknown]
